FAERS Safety Report 5671437-8 (Version None)
Quarter: 2008Q1

REPORT INFORMATION
  Report Type: 
  Country: None (occurrence: None)
  Receive Date: 20080318
  Receipt Date: 20080306
  Transmission Date: 20080703
  Serious: Yes (Disabling, Other)
  Sender: FDA-Public Use
  Company Number: US-PFIZER INC-2008022464

PATIENT
  Age: 55 Year
  Sex: Female

DRUGS (1)
  1. CHANTIX [Suspect]

REACTIONS (9)
  - ACTIVITIES OF DAILY LIVING IMPAIRED [None]
  - AMNESIA [None]
  - BIPOLAR DISORDER [None]
  - DISTURBANCE IN ATTENTION [None]
  - LIBIDO DECREASED [None]
  - LOSS OF EMPLOYMENT [None]
  - MOOD SWINGS [None]
  - PARANOIA [None]
  - TREMOR [None]
